FAERS Safety Report 8135018-9 (Version None)
Quarter: 2012Q1

REPORT INFORMATION
  Report Type: 
  Country: None (occurrence: None)
  Receive Date: 20120214
  Receipt Date: 20120207
  Transmission Date: 20120608
  Serious: Yes (Hospitalization)
  Sender: FDA-Public Use
  Company Number: US-PFIZER INC-2012015733

PATIENT
  Sex: Female

DRUGS (2)
  1. XALKORI [Suspect]
     Indication: LUNG NEOPLASM MALIGNANT
     Dosage: 250 MG, UNK
     Dates: start: 20120106
  2. XALKORI [Suspect]
     Dosage: 250 MG, 1X/DAY
     Dates: start: 20120126

REACTIONS (7)
  - PLEURAL EFFUSION [None]
  - DEHYDRATION [None]
  - CONSTIPATION [None]
  - DECREASED APPETITE [None]
  - NAUSEA [None]
  - ASTHENIA [None]
  - VOMITING [None]
